FAERS Safety Report 20695108 (Version 2)
Quarter: 2022Q2

REPORT INFORMATION
  Report Type: Spontaneous
  Country: JP (occurrence: JP)
  Receive Date: 20220411
  Receipt Date: 20220602
  Transmission Date: 20220720
  Serious: Yes (Death)
  Sender: FDA-Public Use
  Company Number: JP-ELI_LILLY_AND_COMPANY-JP202204002843AA

PATIENT
  Age: 67 Year
  Sex: Male
  Weight: 44 kg

DRUGS (9)
  1. OLUMIANT [Suspect]
     Active Substance: BARICITINIB
     Indication: Rheumatoid arthritis
     Dosage: 4 MG, DAILY
     Route: 048
     Dates: start: 20190523
  2. PREDONINE [Suspect]
     Active Substance: PREDNISOLONE
     Indication: Product used for unknown indication
     Dosage: 2.5 MG, DAILY
     Route: 048
     Dates: start: 20210701
  3. ERYTHROCINE [ERYTHROMYCIN STEARATE] [Concomitant]
     Indication: Bronchitis chronic
     Dosage: 200 MG, BID
     Route: 048
     Dates: start: 20200702
  4. CARBOCYSTEINE [Concomitant]
     Active Substance: CARBOCYSTEINE
     Indication: Bronchitis chronic
     Dosage: 500 MG, BID
     Route: 048
     Dates: start: 20200702
  5. AMBROXOL HYDROCHLORIDE [Concomitant]
     Active Substance: AMBROXOL HYDROCHLORIDE
     Indication: Bronchitis chronic
     Dosage: 45 MG, DAILY
     Route: 048
     Dates: start: 20200702
  6. FUDOSTEINE [Concomitant]
     Active Substance: FUDOSTEINE
     Indication: Bronchitis chronic
     Dosage: 400 MG, TID
     Route: 048
     Dates: start: 20210506
  7. RABEPRAZOLE SODIUM [Concomitant]
     Active Substance: RABEPRAZOLE SODIUM
     Indication: Gastrooesophageal reflux disease
     Dosage: 10 MG, DAILY
     Route: 048
     Dates: start: 20220106
  8. NAFTOPIDIL [Concomitant]
     Active Substance: NAFTOPIDIL
     Indication: Benign prostatic hyperplasia
     Dosage: 75 MG, DAILY
     Route: 048
     Dates: start: 20181213
  9. MIRABEGRON [Concomitant]
     Active Substance: MIRABEGRON
     Indication: Hypertonic bladder
     Dosage: 50 MG, DAILY
     Route: 048
     Dates: start: 20201217

REACTIONS (1)
  - Death [Fatal]

NARRATIVE: CASE EVENT DATE: 20220401
